FAERS Safety Report 7701434-X (Version None)
Quarter: 2011Q3

REPORT INFORMATION
  Report Type: 
  Country: None (occurrence: None)
  Receive Date: 20110819
  Receipt Date: 20110819
  Transmission Date: 20111222
  Serious: No
  Sender: FDA-Public Use
  Company Number: None

PATIENT
  Age: 47 Year
  Sex: Male
  Weight: 107.5 kg

DRUGS (1)
  1. MOXIFLOXACIN [Suspect]
     Indication: SINUSITIS
     Dosage: 400 MG EVERY DAY
     Dates: start: 20110803, end: 20110806

REACTIONS (2)
  - ANAPHYLACTIC REACTION [None]
  - RASH [None]
